FAERS Safety Report 5136441-7 (Version None)
Quarter: 2006Q4

REPORT INFORMATION
  Report Type: 
  Country: None (occurrence: None)
  Receive Date: 20061027
  Receipt Date: 20060502
  Transmission Date: 20070319
  Serious: No
  Sender: FDA-Public Use
  Company Number: US-BRISTOL-MYERS SQUIBB COMPANY-13364435

PATIENT
  Age: 51 Year
  Sex: Male

DRUGS (15)
  1. KENALOG-40 [Suspect]
     Indication: DIABETIC RETINAL OEDEMA
     Route: 031
     Dates: start: 20060418, end: 20060418
  2. NEURONTIN [Concomitant]
  3. EPOGEN [Concomitant]
  4. PHOSLO [Concomitant]
  5. ALPHAGAN [Concomitant]
  6. PRAVACHOL [Concomitant]
  7. LASIX [Concomitant]
  8. ELAVIL [Concomitant]
  9. METOLAZONE [Concomitant]
  10. POTASSIUM ACETATE [Concomitant]
  11. ISTALOL [Concomitant]
  12. NOVABAN [Concomitant]
  13. COREG [Concomitant]
  14. NIFEDIAC [Concomitant]
  15. CARDURA [Concomitant]

REACTIONS (1)
  - EYE INFLAMMATION [None]
